FAERS Safety Report 5783673-0 (Version None)
Quarter: 2008Q2

REPORT INFORMATION
  Report Type: 
  Country: None (occurrence: None)
  Receive Date: 20080605
  Receipt Date: 20080325
  Transmission Date: 20081010
  Serious: No
  Sender: FDA-Public Use
  Company Number: A0716933A

PATIENT
  Age: 44 Year
  Sex: Female

DRUGS (1)
  1. ALLI [Suspect]
     Indication: WEIGHT LOSS DIET
     Route: 048
     Dates: start: 20080304, end: 20080304

REACTIONS (8)
  - ABDOMINAL PAIN LOWER [None]
  - ABDOMINAL PAIN UPPER [None]
  - BACK INJURY [None]
  - CHROMATURIA [None]
  - FEELING ABNORMAL [None]
  - GENITAL HAEMORRHAGE [None]
  - ILL-DEFINED DISORDER [None]
  - INSOMNIA [None]
